FAERS Safety Report 8130501-4 (Version None)
Quarter: 2012Q1

REPORT INFORMATION
  Report Type: 
  Country: None (occurrence: None)
  Receive Date: 20120210
  Receipt Date: 20120206
  Transmission Date: 20120608
  Serious: Yes (Other)
  Sender: FDA-Public Use
  Company Number: US-ASTRAZENECA-2011SE09493

PATIENT
  Age: 553 Month
  Sex: Female
  Weight: 72.6 kg

DRUGS (5)
  1. NEURONTIN [Concomitant]
  2. SEROQUEL [Suspect]
     Route: 048
     Dates: start: 20020101
  3. LEXAPRO [Concomitant]
  4. KLONOPIN [Concomitant]
  5. SEROQUEL [Suspect]
     Indication: SLEEP DISORDER
     Route: 048
     Dates: start: 20010101

REACTIONS (4)
  - BRONCHITIS [None]
  - OFF LABEL USE [None]
  - MENISCUS LESION [None]
  - ACCIDENT AT WORK [None]
